FAERS Safety Report 16585503 (Version 3)
Quarter: 2020Q1

REPORT INFORMATION
  Report Type: Spontaneous
  Country: US (occurrence: US)
  Receive Date: 20190717
  Receipt Date: 20200330
  Transmission Date: 20200409
  Serious: Yes (Hospitalization)
  Sender: FDA-Public Use
  Company Number: US-ACTELION-A-NJ2019-192993

PATIENT
  Age: 51 Year
  Sex: Male
  Weight: 82.54 kg

DRUGS (13)
  1. ADCIRCA [Concomitant]
     Active Substance: TADALAFIL
     Dosage: 20 MG
  2. OMEPRAZOLE. [Concomitant]
     Active Substance: OMEPRAZOLE
     Dosage: 20 MG
  3. ZANTAC [Concomitant]
     Active Substance: RANITIDINE HYDROCHLORIDE
     Dosage: 150 MG
  4. VELETRI [Suspect]
     Active Substance: EPOPROSTENOL
     Dosage: 45 NG/KG, PER MIN
     Route: 042
  5. ACETAMINOPHEN. [Concomitant]
     Active Substance: ACETAMINOPHEN
     Dosage: 500 MG
  6. FUROSEMIDE. [Concomitant]
     Active Substance: FUROSEMIDE
     Dosage: 20 MG
  7. SOTALOL HCL [Concomitant]
     Active Substance: SOTALOL
     Dosage: 80 MG
  8. FLONASE [Concomitant]
     Active Substance: FLUTICASONE PROPIONATE
     Dosage: 50 MCG
  9. VELETRI [Suspect]
     Active Substance: EPOPROSTENOL
     Indication: PULMONARY ARTERIAL HYPERTENSION
     Dosage: 51 NG/KG, PER MIN
     Route: 042
  10. OPSUMIT [Suspect]
     Active Substance: MACITENTAN
     Indication: PULMONARY ARTERIAL HYPERTENSION
     Dosage: 10 MG
     Route: 048
     Dates: start: 20190611
  11. VELETRI [Suspect]
     Active Substance: EPOPROSTENOL
     Dosage: 37 NG/KG, PER MIN
     Route: 042
  12. WARFARIN [Concomitant]
     Active Substance: WARFARIN
     Dosage: 5 MG
  13. TOBRAMYCIN. [Concomitant]
     Active Substance: TOBRAMYCIN

REACTIONS (5)
  - Pneumonia [Unknown]
  - Pancreatitis [Unknown]
  - Product dose omission [Unknown]
  - Hospitalisation [Unknown]
  - Memory impairment [Unknown]

NARRATIVE: CASE EVENT DATE: 20191226
